FAERS Safety Report 7700809-2 (Version None)
Quarter: 2011Q3

REPORT INFORMATION
  Report Type: 
  Country: None (occurrence: None)
  Receive Date: 20110822
  Receipt Date: 20110811
  Transmission Date: 20111222
  Serious: Yes (Death)
  Sender: FDA-Public Use
  Company Number: US-CELGENEUS-163-21880-11033649

PATIENT
  Sex: Female
  Weight: 62.6 kg

DRUGS (2)
  1. DEXAMETHASONE [Concomitant]
     Route: 065
  2. REVLIMID [Suspect]
     Indication: MULTIPLE MYELOMA
     Dosage: 15 MILLIGRAM
     Route: 048
     Dates: start: 20110228, end: 20110331

REACTIONS (4)
  - MULTIPLE MYELOMA [None]
  - BONE MARROW FAILURE [None]
  - FATIGUE [None]
  - DRY SKIN [None]
